FAERS Safety Report 19489401 (Version 3)
Quarter: 2022Q1

REPORT INFORMATION
  Report Type: Report from Study
  Country: IN (occurrence: IN)
  Receive Date: 20210703
  Receipt Date: 20220121
  Transmission Date: 20220423
  Serious: No
  Sender: FDA-Public Use
  Company Number: IN-NOVARTISPH-NVSC2021IN084891

PATIENT
  Age: 32 Year
  Sex: Male

DRUGS (11)
  1. SECUKINUMAB [Suspect]
     Active Substance: SECUKINUMAB
     Indication: Psoriasis
     Dosage: 300 MG, QW
     Route: 058
     Dates: end: 20210403
  2. SECUKINUMAB [Suspect]
     Active Substance: SECUKINUMAB
     Dosage: 300 MG
     Route: 065
     Dates: start: 20210323
  3. SECUKINUMAB [Suspect]
     Active Substance: SECUKINUMAB
     Dosage: 300 MG, QW
     Route: 065
     Dates: start: 20210410
  4. SECUKINUMAB [Suspect]
     Active Substance: SECUKINUMAB
     Dosage: 300 MG, QW
     Route: 058
     Dates: start: 20210412
  5. SECUKINUMAB [Suspect]
     Active Substance: SECUKINUMAB
     Dosage: 150 MG, QMO
     Route: 058
     Dates: start: 20210520
  6. SECUKINUMAB [Suspect]
     Active Substance: SECUKINUMAB
     Dosage: 150 MG, QMO
     Route: 058
     Dates: start: 20210623
  7. SECUKINUMAB [Suspect]
     Active Substance: SECUKINUMAB
     Dosage: 150 MG (ONCE IN 6-8 WEEKS)
     Route: 058
  8. ACROTAC [Concomitant]
     Indication: Product used for unknown indication
     Dosage: UNK, QW2 (25 MG, MONDAY AND FRIDAY)
     Route: 065
  9. NOVOSTAT [Concomitant]
     Indication: Blood cholesterol
     Dosage: UNK, QD (10 MG)
     Route: 065
  10. DOLO [Concomitant]
     Indication: Pain
     Dosage: UNK (650)
     Route: 065
  11. VENUSIA [Concomitant]
     Indication: Product used for unknown indication
     Dosage: UNK (LOTION)
     Route: 065

REACTIONS (8)
  - Fatigue [Unknown]
  - Psoriasis [Unknown]
  - Skin exfoliation [Unknown]
  - Pruritus [Unknown]
  - Headache [Unknown]
  - Skin hypertrophy [Unknown]
  - Underdose [Unknown]
  - Product prescribing error [Unknown]
